FAERS Safety Report 12027980 (Version 1)
Quarter: 2016Q1

REPORT INFORMATION
  Report Type: Report from Study
  Country: US (occurrence: US)
  Receive Date: 20160207
  Receipt Date: 20160207
  Transmission Date: 20160526
  Serious: No
  Sender: FDA-Public Use
  Company Number: US-ABBVIE-15K-163-1495649-00

PATIENT
  Age: 57 Year
  Sex: Female

DRUGS (2)
  1. HUMIRA [Suspect]
     Active Substance: ADALIMUMAB
     Indication: RHEUMATOID ARTHRITIS
     Route: 058
     Dates: start: 2015, end: 2015
  2. HUMIRA [Suspect]
     Active Substance: ADALIMUMAB
     Route: 058
     Dates: start: 201508

REACTIONS (10)
  - Injection site swelling [Not Recovered/Not Resolved]
  - Incorrect dose administered [Unknown]
  - Joint stiffness [Recovering/Resolving]
  - Injection site pruritus [Not Recovered/Not Resolved]
  - Drug ineffective [Unknown]
  - Fatigue [Recovering/Resolving]
  - Injection site erythema [Not Recovered/Not Resolved]
  - Arthralgia [Recovering/Resolving]
  - Injection site pain [Not Recovered/Not Resolved]
  - Wrong technique in product usage process [Unknown]

NARRATIVE: CASE EVENT DATE: 2015
